FAERS Safety Report 5419395-5 (Version None)
Quarter: 2007Q3

REPORT INFORMATION
  Report Type: 
  Country: None (occurrence: None)
  Receive Date: 20070820
  Receipt Date: 20070810
  Transmission Date: 20080115
  Serious: Yes (Hospitalization)
  Sender: FDA-Public Use
  Company Number: A0630699A

PATIENT
  Age: 53 Year
  Sex: Female
  Weight: 63.1 kg

DRUGS (2)
  1. LAPATINIB [Suspect]
     Indication: BREAST CANCER METASTATIC
     Dosage: 1500MG PER DAY
     Route: 048
     Dates: start: 20061123
  2. PACLITAXEL [Suspect]
     Indication: BREAST CANCER METASTATIC
     Dosage: 80MGM2 CYCLIC
     Route: 042
     Dates: start: 20061123

REACTIONS (8)
  - ABDOMINAL PAIN [None]
  - ANOREXIA [None]
  - CANDIDIASIS [None]
  - DIARRHOEA [None]
  - ESCHERICHIA INFECTION [None]
  - LEUKOPENIA [None]
  - NEUTROPENIA [None]
  - STAPHYLOCOCCAL INFECTION [None]
